FAERS Safety Report 10176936 (Version 1)
Quarter: 2014Q2

REPORT INFORMATION
  Report Type: Spontaneous
  Country: US (occurrence: None)
  Receive Date: 20140515
  Receipt Date: 20140515
  Transmission Date: 20141212
  Serious: Yes (Hospitalization)
  Sender: FDA-Public Use
  Company Number: None

PATIENT
  Age: 58 Year
  Sex: Female
  Weight: 62.27 kg

DRUGS (2)
  1. CISPLATIN [Suspect]
  2. GEMCITABINE HYDROCHLORIDE [Suspect]

REACTIONS (3)
  - Pubis fracture [None]
  - Pubis fracture [None]
  - Pathological fracture [None]
